FAERS Safety Report 18474332 (Version 1)
Quarter: 2020Q4

REPORT INFORMATION
  Report Type: Spontaneous
  Country: CN (occurrence: CN)
  Receive Date: 20201106
  Receipt Date: 20201106
  Transmission Date: 20210114
  Serious: Yes (Life-Threatening, Hospitalization, Other)
  Sender: FDA-Public Use
  Company Number: CN-BAYER-2020-240131

PATIENT
  Age: 75 Year
  Sex: Female
  Weight: 50 kg

DRUGS (5)
  1. GLICLAZIDE [Interacting]
     Active Substance: GLICLAZIDE
     Indication: TYPE 2 DIABETES MELLITUS
     Dosage: 80 MG, BID
     Route: 048
     Dates: start: 20200318, end: 20201005
  2. DAIDZEIN [Concomitant]
  3. GLUCOBAY [Suspect]
     Active Substance: ACARBOSE
     Indication: TYPE 2 DIABETES MELLITUS
     Dosage: 50 MG, TID
     Route: 048
     Dates: start: 20200318, end: 20201005
  4. GLUCOPHAGE [Interacting]
     Active Substance: METFORMIN HYDROCHLORIDE
     Indication: TYPE 2 DIABETES MELLITUS
     Dosage: 0.5 G, BID
     Route: 048
     Dates: start: 20200318, end: 20201005
  5. ROSIGLITAZONE SODIUM [Concomitant]
     Active Substance: ROSIGLITAZONE

REACTIONS (7)
  - Electrocardiogram ST-T change [None]
  - Drug interaction [None]
  - Depressed level of consciousness [Recovered/Resolved]
  - Wrong technique in product usage process [None]
  - Hyperhidrosis [Recovered/Resolved]
  - Hypoglycaemic coma [Recovered/Resolved]
  - Supraventricular extrasystoles [None]

NARRATIVE: CASE EVENT DATE: 20201005
